FAERS Safety Report 7272575-9 (Version None)
Quarter: 2011Q1

REPORT INFORMATION
  Report Type: 
  Country: None (occurrence: None)
  Receive Date: 20110131
  Receipt Date: 20110131
  Transmission Date: 20110831
  Serious: Yes (Hospitalization, Other)
  Sender: FDA-Public Use
  Company Number: None

PATIENT
  Sex: Male
  Weight: 33 kg

DRUGS (1)
  1. IFOSFAMIDE [Suspect]
     Indication: PENILE NEOPLASM
     Dosage: 2.07 GM -1.8 GM/ M2- 5 DAY COURSES X3 IV
     Route: 042
     Dates: start: 20100922, end: 20101215

REACTIONS (6)
  - FALL [None]
  - HYDROCEPHALUS [None]
  - HYPOPHAGIA [None]
  - WEIGHT DECREASED [None]
  - NAUSEA [None]
  - ENCEPHALOPATHY [None]
